FAERS Safety Report 25753523 (Version 1)
Quarter: 2025Q3

REPORT INFORMATION
  Report Type: Other
  Country: EU (occurrence: EU)
  Receive Date: 20250903
  Receipt Date: 20250903
  Transmission Date: 20251021
  Serious: Yes (Disabling)
  Sender: ZYDUS PHARM
  Company Number: None

PATIENT

DRUGS (4)
  1. CLOPIDOGREL [Suspect]
     Active Substance: CLOPIDOGREL BISULFATE
     Indication: Cerebrovascular accident
     Route: 048
     Dates: start: 20250308
  2. CLOPIDOGREL [Suspect]
     Active Substance: CLOPIDOGREL BISULFATE
     Route: 048
     Dates: start: 20250309
  3. ASPIRIN LYSINE [Suspect]
     Active Substance: ASPIRIN LYSINE
     Indication: Cerebrovascular accident
     Route: 051
     Dates: start: 20250308
  4. ASPIRIN LYSINE [Suspect]
     Active Substance: ASPIRIN LYSINE
     Route: 048
     Dates: start: 20250309

REACTIONS (3)
  - Fall [Recovering/Resolving]
  - Femoral neck fracture [Recovering/Resolving]
  - Dizziness [Recovering/Resolving]

NARRATIVE: CASE EVENT DATE: 20250312
